FAERS Safety Report 22904140 (Version 2)
Quarter: 2023Q4

REPORT INFORMATION
  Report Type: Other
  Country: US (occurrence: None)
  Receive Date: 20230905
  Receipt Date: 20231013
  Transmission Date: 20240110
  Serious: Yes (Other)
  Sender: FDA-Public Use
  Company Number: US-ROCHE-3415348

PATIENT
  Age: 50 Year
  Sex: Female
  Weight: 51.756 kg

DRUGS (7)
  1. OCREVUS [Suspect]
     Active Substance: OCRELIZUMAB
     Indication: Relapsing multiple sclerosis
     Dosage: DATE OF TREATMENT WAS  06/APR/2023, 24/OCT/2022, 07/NOV/2022 AND HER NEXT ONE IS SCHEDULED FOR /SEP/
     Route: 042
     Dates: start: 20221024, end: 20230406
  2. OCREVUS [Suspect]
     Active Substance: OCRELIZUMAB
     Indication: Primary progressive multiple sclerosis
  3. DALFAMPRIDINE [Concomitant]
     Active Substance: DALFAMPRIDINE
     Route: 048
     Dates: start: 202301
  4. HYDROCHLOROTHIAZIDE [Concomitant]
     Active Substance: HYDROCHLOROTHIAZIDE
     Indication: Blood pressure increased
     Route: 048
     Dates: start: 2023
  5. VITAMIN D3 [Concomitant]
     Active Substance: CHOLECALCIFEROL
     Dosage: MAY SKIP A DAY BECAUSE IT IS A HIGH DOSE, AT LEAST 3 A WEEK
     Route: 048
     Dates: start: 2022
  6. ASPIRIN [Concomitant]
     Active Substance: ASPIRIN
     Route: 048
  7. GEMTESA [Concomitant]
     Active Substance: VIBEGRON
     Indication: Urinary incontinence
     Route: 048

REACTIONS (2)
  - Multiple sclerosis [Not Recovered/Not Resolved]
  - COVID-19 [Recovered/Resolved]

NARRATIVE: CASE EVENT DATE: 20230701
